FAERS Safety Report 9503121 (Version 1)
Quarter: 2013Q3

REPORT INFORMATION
  Report Type: Spontaneous
  Country: US (occurrence: US)
  Receive Date: 20130906
  Receipt Date: 20130906
  Transmission Date: 20140515
  Serious: Yes (Hospitalization)
  Sender: FDA-Public Use
  Company Number: US-ELI_LILLY_AND_COMPANY-US201308008376

PATIENT
  Age: 61 Year
  Sex: Male
  Weight: 128.35 kg

DRUGS (37)
  1. CYMBALTA [Suspect]
     Indication: DEPRESSION
     Dosage: 60 MG, BID
     Route: 048
     Dates: start: 2007
  2. MORPHINE SULFATE [Suspect]
     Indication: BACK PAIN
     Dosage: 60 MG, TID
     Route: 048
     Dates: start: 20121115
  3. OXYCODONE HYDROCHLORIDE [Suspect]
     Indication: NEUROPATHY PERIPHERAL
     Dosage: 10 MG, QID
     Dates: start: 201209
  4. GABAPENTIN [Suspect]
     Indication: NEUROPATHY PERIPHERAL
     Dosage: 100 MG, TID
     Dates: start: 201209
  5. HYDROCODONE [Suspect]
     Indication: BACK PAIN
     Dosage: 80 MG, QD
     Route: 048
     Dates: start: 1992
  6. METOLAZONE [Suspect]
     Indication: CARDIAC FAILURE CONGESTIVE
     Dosage: 5 MG, QOD
     Dates: end: 200311
  7. CARVEDILOL [Suspect]
     Indication: HYPERTENSION
     Dosage: 6.25 MG, BID
     Route: 048
     Dates: start: 20121114
  8. PREDNISONE [Suspect]
     Indication: ASTHMA
     Dosage: 10 MG, QD
     Route: 048
     Dates: start: 20120628
  9. PREDNISONE [Suspect]
     Indication: CHRONIC OBSTRUCTIVE PULMONARY DISEASE
  10. MIDODRINE [Suspect]
     Indication: HYPOTENSION
     Dosage: 5 MG, QD
     Route: 048
     Dates: start: 201210
  11. AMIODARONE [Suspect]
     Indication: VENTRICULAR FIBRILLATION
     Dosage: 220 MG, QD
     Route: 048
  12. PROCATEROL HYDROCHLORIDE [Concomitant]
     Indication: ASTHMA
     Dosage: UNK
     Dates: start: 201201
  13. TAMSULOSIN [Concomitant]
     Indication: URINARY RETENTION
     Dosage: UNK
     Dates: start: 201208
  14. ROFLUMILAST [Concomitant]
     Indication: ASTHMA
     Dosage: UNK
     Dates: start: 2011
  15. ROFLUMILAST [Concomitant]
     Indication: CHRONIC OBSTRUCTIVE PULMONARY DISEASE
  16. KETOCONAZOL [Concomitant]
     Indication: PRURITUS
     Dosage: UNK
     Dates: start: 2005
  17. FUROSEMIDE [Concomitant]
     Indication: CARDIAC FAILURE CONGESTIVE
     Dosage: UNK
     Dates: start: 20121207
  18. FORMOTEROL W/MOMETASONE [Concomitant]
     Indication: ASTHMA
     Dosage: UNK
     Dates: start: 20021115
  19. TIOTROPIUM BROMIDE [Concomitant]
     Indication: ASTHMA
     Dosage: UNK
     Dates: start: 20021115
  20. LISINOPRIL [Concomitant]
     Indication: HYPERTENSION
     Dosage: UNK
     Dates: start: 20121114
  21. LIDOCAINE [Concomitant]
     Indication: NEUROPATHY PERIPHERAL
     Dosage: UNK
     Dates: start: 2004
  22. LORATADINE ACTAVIS [Concomitant]
     Indication: SEASONAL ALLERGY
     Dosage: UNK
     Dates: start: 1992
  23. CLOPIDOGREL SULFATE [Concomitant]
     Indication: CARDIOVASCULAR EVENT PROPHYLAXIS
     Dosage: UNK
  24. SPIRONOLACTONE [Concomitant]
     Indication: CARDIAC FAILURE CONGESTIVE
     Dosage: UNK
     Dates: start: 1999
  25. FLUTICASONE PROPIONATE W/SALMETEROL [Concomitant]
     Indication: SEASONAL ALLERGY
     Dosage: UNK
     Dates: start: 2003
  26. LEVOTHYROXINE [Concomitant]
     Indication: HYPOTHYROIDISM
     Dosage: UNK
     Dates: start: 20121219
  27. INSULIN [Concomitant]
     Indication: TYPE 2 DIABETES MELLITUS
     Dosage: UNK
     Dates: start: 201206
  28. ATORVASTATIN [Concomitant]
     Indication: DYSLIPIDAEMIA
     Dosage: UNK
     Dates: start: 201210
  29. ERGOCALCIFEROL [Concomitant]
     Indication: NEUROPATHY PERIPHERAL
     Dosage: UNK
     Dates: start: 201210
  30. FINASTERIDE [Concomitant]
     Indication: URINARY RETENTION
     Dosage: UNK
     Dates: start: 201208
  31. IPRATROPIUM BROMIDE W/SALBUTAMOL SULFATE [Concomitant]
     Indication: ASTHMA
     Dosage: UNK
     Dates: start: 1992
  32. DIAZEPAM [Concomitant]
     Indication: ANXIETY
     Dosage: UNK
     Dates: start: 1995
  33. ZOLPIDEM TARTRATE [Concomitant]
     Indication: INSOMNIA
     Dosage: UNK
     Dates: start: 2005
  34. OMEGA-3 TRIGLYCERIDES [Concomitant]
     Indication: CARDIAC FAILURE CONGESTIVE
     Dosage: UNK
     Dates: start: 2010
  35. BACLOFEN [Concomitant]
     Indication: BACK PAIN
     Dosage: UNK
  36. ALDACTONE [Concomitant]
     Indication: CARDIAC FAILURE CONGESTIVE
     Dosage: UNK
     Dates: end: 201301
  37. ESOMEPRAZOLE [Concomitant]
     Indication: GASTRITIS PROPHYLAXIS
     Dosage: UNK

REACTIONS (3)
  - Cardiac failure [Recovered/Resolved]
  - Overdose [Recovered/Resolved]
  - Haematuria [Unknown]
